FAERS Safety Report 5870183-5 (Version None)
Quarter: 2008Q3

REPORT INFORMATION
  Report Type: 
  Country: None (occurrence: None)
  Receive Date: 20080904
  Receipt Date: 20080822
  Transmission Date: 20090109
  Serious: Yes (Other)
  Sender: FDA-Public Use
  Company Number: GB-PFIZER INC-2008070942

PATIENT
  Age: 28 Year
  Sex: Female

DRUGS (5)
  1. PHENYTOIN [Suspect]
     Indication: EPILEPSY
     Route: 042
  2. TOPIRAMATE [Suspect]
     Indication: EPILEPSY
     Route: 048
  3. CLONAZEPAM [Concomitant]
     Indication: EPILEPSY
  4. NORDETTE-28 [Concomitant]
  5. PREGABALIN [Concomitant]
     Indication: EPILEPSY

REACTIONS (2)
  - LIVER FUNCTION TEST ABNORMAL [None]
  - PRURITUS [None]
